FAERS Safety Report 4488650-8 (Version None)
Quarter: 2004Q4

REPORT INFORMATION
  Report Type: 
  Country: None (occurrence: None)
  Receive Date: 20041026
  Receipt Date: 20041007
  Transmission Date: 20050328
  Serious: Yes (Death, Other)
  Sender: FDA-Public Use
  Company Number: USA041080520

PATIENT
  Age: 72 Year
  Sex: Male
  Weight: 93 kg

DRUGS (2)
  1. XIGRIS [Suspect]
     Indication: SEPSIS
     Dosage: 24 UG/KG/HR
     Dates: start: 20041001, end: 20041001
  2. COUMADIN [Concomitant]

REACTIONS (1)
  - DEATH [None]
